FAERS Safety Report 5813935-X (Version None)
Quarter: 2008Q3

REPORT INFORMATION
  Report Type: 
  Country: None (occurrence: None)
  Receive Date: 20080717
  Receipt Date: 20080707
  Transmission Date: 20090109
  Serious: Yes (Life-Threatening, Other)
  Sender: FDA-Public Use
  Company Number: US-ABBOTT-08P-163-0443476-00

PATIENT
  Age: 40 Year
  Sex: Male

DRUGS (8)
  1. RITONAVIR SOFT GELATIN CAPSULES [Suspect]
     Indication: HIV INFECTION
     Dosage: TPV/RTV 250/100 MG
     Route: 048
     Dates: start: 20051121, end: 20060813
  2. RITONAVIR SOFT GELATIN CAPSULES [Suspect]
     Dosage: 500/100 MG, 250/100 MG
     Route: 048
     Dates: start: 20051121, end: 20061208
  3. APTIVUS [Suspect]
     Indication: HIV INFECTION
     Dosage: TPV/RTV 250/100 MG
     Route: 048
     Dates: start: 20051121, end: 20060813
  4. APTIVUS [Suspect]
     Dosage: 500/100 MG, 250/100 MG
     Route: 048
     Dates: start: 20051121, end: 20061208
  5. RITONAVIR [Concomitant]
     Indication: DRUG USE FOR UNKNOWN INDICATION
     Dates: start: 20050421
  6. TRUVADA [Concomitant]
     Indication: DRUG USE FOR UNKNOWN INDICATION
     Dosage: TDF 300 MG/FTC 200 MG
     Dates: start: 20051121
  7. ENFUVIRTIDE [Concomitant]
     Indication: DRUG USE FOR UNKNOWN INDICATION
     Dates: start: 20051121, end: 20080229
  8. DAPSOAL [Concomitant]
     Indication: DRUG USE FOR UNKNOWN INDICATION
     Dates: start: 19930101, end: 20071001

REACTIONS (2)
  - ANEURYSM [None]
  - EMBOLISM [None]
